FAERS Safety Report 4876042-9 (Version None)
Quarter: 2005Q4

REPORT INFORMATION
  Report Type: 
  Country: None (occurrence: None)
  Receive Date: 20051206
  Receipt Date: 20050616
  Transmission Date: 20060501
  Serious: No
  Sender: FDA-Public Use
  Company Number: US_0506119479

PATIENT
  Sex: Female
  Weight: 44 kg

DRUGS (1)
  1. CYMBALTA [Suspect]
     Indication: DEPRESSION
     Dosage: 60 MG DAY
     Dates: start: 20040916

REACTIONS (2)
  - HERPES DERMATITIS [None]
  - MYALGIA [None]
